FAERS Safety Report 18426166 (Version 2)
Quarter: 2020Q4

REPORT INFORMATION
  Report Type: Report from Study
  Country: US (occurrence: US)
  Receive Date: 20201026
  Receipt Date: 20201027
  Transmission Date: 20210114
  Serious: Yes (Hospitalization, Other)
  Sender: FDA-Public Use
  Company Number: US-IPSEN BIOPHARMACEUTICALS, INC.-2020-20320

PATIENT
  Age: 57 Year
  Sex: Female
  Weight: 72.8 kg

DRUGS (13)
  1. ONIVYDE [Suspect]
     Active Substance: IRINOTECAN HYDROCHLORIDE
     Indication: PRODUCT USED FOR UNKNOWN INDICATION
     Dosage: FREQUENCY: WEEKLY (3 WEEKS ON, 1 WEEK OFF)
     Route: 042
     Dates: start: 20200402
  2. FLUOROURACIL. [Suspect]
     Active Substance: FLUOROURACIL
     Indication: PRODUCT USED FOR UNKNOWN INDICATION
     Dosage: FREQUENCY: WEEKLY (3 WEEKS ON, 1 WEEK OFF)
     Route: 042
     Dates: start: 20200402
  3. POTASSIUM CHLORIDE. [Concomitant]
     Active Substance: POTASSIUM CHLORIDE
     Dates: start: 20200806
  4. MULTIVITAMIN [Concomitant]
     Active Substance: VITAMINS
  5. IBUPROFEN. [Concomitant]
     Active Substance: IBUPROFEN
     Dates: start: 2020
  6. OMEPRAZOLE. [Concomitant]
     Active Substance: OMEPRAZOLE
     Indication: GASTROOESOPHAGEAL REFLUX DISEASE
     Dates: start: 20200617
  7. LANTUS [Concomitant]
     Active Substance: INSULIN GLARGINE
     Indication: TYPE 2 DIABETES MELLITUS
     Dosage: LANTUS SOLOSTAR PEN 100 UNIT/ML SUBCUTANEOUS SOLUTION, START AT 7 UNITS DAILY, UP TO 20 UNITS DAILY
     Route: 058
  8. METFORMIN [Concomitant]
     Active Substance: METFORMIN HYDROCHLORIDE
     Dosage: EXTENDED RELEASE 2 TABLETS FOR 30 DAYS
     Route: 048
  9. LEUCOVORIN. [Suspect]
     Active Substance: LEUCOVORIN
     Indication: PRODUCT USED FOR UNKNOWN INDICATION
     Dosage: FREQUENCY: WEEKLY (3 WEEKS ON, 1 WEEK OFF)
     Route: 042
     Dates: start: 20200402
  10. HYDROCHLOROTHIAZIDE-TRIAMTERENE [Concomitant]
     Indication: PANCREATIC CARCINOMA
     Dosage: 37.5-25 MG
     Route: 048
  11. HYDROXYZINE [Concomitant]
     Active Substance: HYDROXYZINE HYDROCHLORIDE
     Indication: PRURITUS
     Dates: start: 202002
  12. VITAMIN B12 [Concomitant]
     Active Substance: CYANOCOBALAMIN
  13. OXYCODONE-ACETAMINOPHEN [Concomitant]
     Active Substance: ACETAMINOPHEN\OXYCODONE HYDROCHLORIDE
     Dosage: 5-325 MG

REACTIONS (4)
  - Sepsis [Recovering/Resolving]
  - Constipation [Recovering/Resolving]
  - Faecaloma [Unknown]
  - Flatulence [Unknown]

NARRATIVE: CASE EVENT DATE: 202010
